FAERS Safety Report 4269693-6 (Version None)
Quarter: 2004Q1

REPORT INFORMATION
  Report Type: 
  Country: None (occurrence: None)
  Receive Date: 20040112
  Receipt Date: 20031230
  Transmission Date: 20041129
  Serious: Yes (Hospitalization)
  Sender: FDA-Public Use
  Company Number: LTI2003A00202

PATIENT
  Age: 61 Year
  Sex: Male

DRUGS (3)
  1. ACTOS [Suspect]
     Indication: DIABETES MELLITUS NON-INSULIN-DEPENDENT
     Dosage: 30 MG (30 MG, 1 IN 1 D) ORAL
     Route: 048
     Dates: start: 20020901
  2. AMARYL [Suspect]
     Dosage: 4 MG (1 IN 1 D) ORAL
     Route: 048
  3. FENOFIBRATE [Suspect]
     Indication: DIABETES MELLITUS NON-INSULIN-DEPENDENT
     Dosage: 200 MG (1 IN 1 D) ORAL
     Route: 048
     Dates: end: 20030903

REACTIONS (14)
  - ACUTE PULMONARY OEDEMA [None]
  - BLOOD ALKALINE PHOSPHATASE INCREASED [None]
  - BLOOD PRESSURE DIASTOLIC INCREASED [None]
  - BODY TEMPERATURE DECREASED [None]
  - DUODENAL STENOSIS [None]
  - HEPATOMEGALY [None]
  - HYPOXIA [None]
  - LEUKOCYTOSIS [None]
  - PANCREATIC PSEUDOCYST [None]
  - PANCREATITIS ACUTE [None]
  - RESPIRATORY FAILURE [None]
  - RESPIRATORY RATE INCREASED [None]
  - TACHYPNOEA [None]
  - VOMITING [None]
